FAERS Safety Report 25154191 (Version 2)
Quarter: 2025Q3

REPORT INFORMATION
  Report Type: Spontaneous
  Country: JP (occurrence: JP)
  Receive Date: 20250403
  Receipt Date: 20250809
  Transmission Date: 20251020
  Serious: Yes (Other)
  Sender: ALEXION PHARMACEUTICALS
  Company Number: JP-ASTRAZENECA-240064497_010520_P_1

PATIENT
  Age: 5 Decade
  Sex: Female

DRUGS (3)
  1. FASLODEX [Suspect]
     Active Substance: FULVESTRANT
     Indication: Breast cancer female
  2. FASLODEX [Suspect]
     Active Substance: FULVESTRANT
  3. VERZENIO [Concomitant]
     Active Substance: ABEMACICLIB
     Indication: Breast cancer female

REACTIONS (5)
  - Chest pain [Unknown]
  - Arrhythmia [Unknown]
  - Chest discomfort [Unknown]
  - Palpitations [Unknown]
  - Oedema [Unknown]
